FAERS Safety Report 18437388 (Version 2)
Quarter: 2021Q3

REPORT INFORMATION
  Report Type: Report from Study
  Country: US (occurrence: US)
  Receive Date: 20201028
  Receipt Date: 20210703
  Transmission Date: 20211014
  Serious: Yes (Other)
  Sender: FDA-Public Use
  Company Number: US-TAKEDA-US202034455

PATIENT
  Sex: Female

DRUGS (1)
  1. HUMAN NORMAL IMMUNOGLOBULIN; LIQUID [Suspect]
     Active Substance: HUMAN IMMUNOGLOBULIN G
     Indication: IMMUNODEFICIENCY COMMON VARIABLE
     Route: 042

REACTIONS (6)
  - Fatigue [Unknown]
  - Emotional disorder [Unknown]
  - Product dose omission issue [Unknown]
  - Poor quality sleep [Unknown]
  - Thyroid disorder [Unknown]
  - COVID-19 [Recovered/Resolved]
